FAERS Safety Report 5669552-8 (Version None)
Quarter: 2008Q1

REPORT INFORMATION
  Report Type: 
  Country: None (occurrence: None)
  Receive Date: 20080312
  Receipt Date: 20080312
  Transmission Date: 20080703
  Serious: Yes (Other)
  Sender: FDA-Public Use
  Company Number: None

PATIENT
  Age: 61 Year
  Sex: Male
  Weight: 102.0593 kg

DRUGS (1)
  1. VESICARE [Suspect]
     Indication: NOCTURIA
     Dosage: 1 DAILY PO
     Route: 048
     Dates: start: 20070615, end: 20070618

REACTIONS (3)
  - ANURIA [None]
  - DYSURIA [None]
  - URINE ABNORMALITY [None]
